FAERS Safety Report 21371619 (Version 1)
Quarter: 2022Q3

REPORT INFORMATION
  Report Type: Other
  Country: CA (occurrence: None)
  Receive Date: 20220923
  Receipt Date: 20220923
  Transmission Date: 20221026
  Serious: Yes (Death, Other)
  Sender: FDA-Public Use
  Company Number: CA-ROCHE-3184201

PATIENT
  Age: 43 Year
  Sex: Male

DRUGS (5)
  1. VALGANCICLOVIR [Suspect]
     Active Substance: VALGANCICLOVIR
     Indication: Cytomegalovirus infection reactivation
     Route: 065
  2. RITUXIMAB [Suspect]
     Active Substance: RITUXIMAB
     Indication: Epstein-Barr viraemia
     Route: 065
  3. GANCICLOVIR SODIUM [Suspect]
     Active Substance: GANCICLOVIR SODIUM
     Indication: Encephalitis cytomegalovirus
     Route: 042
  4. GANCICLOVIR SODIUM [Suspect]
     Active Substance: GANCICLOVIR SODIUM
     Route: 042
  5. FOSCARNET [Concomitant]
     Active Substance: FOSCARNET

REACTIONS (7)
  - Off label use [Unknown]
  - Cytomegalovirus infection reactivation [Unknown]
  - Encephalitis cytomegalovirus [Fatal]
  - BK virus infection [Unknown]
  - Myelosuppression [Unknown]
  - Acute kidney injury [Unknown]
  - Drug ineffective [Fatal]
